FAERS Safety Report 8735801 (Version 2)
Quarter: 2012Q4

REPORT INFORMATION
  Report Type: Spontaneous
  Country: JP (occurrence: None)
  Receive Date: 20120803
  Receipt Date: 20120815
  Transmission Date: 20130627
  Serious: Yes (Other)
  Sender: FDA-Public Use
  Company Number: TCI2012A04051

PATIENT
  Age: 48 Year
  Sex: Female

DRUGS (3)
  1. AMOXICILLIN\CLARITHROMYCIN\LANSOPRAZOLE [Suspect]
     Indication: THERAPEUTIC PROCEDURE
     Dosage: 0.5 CARD (0.5 CARD, 1 IN 1 D) ORAL, 0.5 CARD (0.5 CARD, 1 IN 1 D) ORAL
     Route: 048
     Dates: start: 20101228, end: 20101228
  2. AMOXICILLIN\CLARITHROMYCIN\LANSOPRAZOLE [Suspect]
     Indication: THERAPEUTIC PROCEDURE
     Dosage: 0.5 CARD (0.5 CARD, 1 IN 1 D) ORAL, 0.5 CARD (0.5 CARD, 1 IN 1 D) ORAL
     Route: 048
     Dates: start: 20110602, end: 20110602
  3. LANSOPRAZOLE [Suspect]
     Dosage: ORAL
     Route: 048
     Dates: start: 20110608, end: 20110608

REACTIONS (1)
  - TYPE I HYPERSENSITIVITY [None]
